FAERS Safety Report 21800373 (Version 1)
Quarter: 2022Q4

REPORT INFORMATION
  Report Type: Spontaneous
  Country: CN (occurrence: CN)
  Receive Date: 20221230
  Receipt Date: 20221230
  Transmission Date: 20230113
  Serious: Yes (Other)
  Sender: FDA-Public Use
  Company Number: CN-SUN PHARMACEUTICAL INDUSTRIES LTD-2022R1-370953

PATIENT
  Age: 45 Year
  Sex: Male

DRUGS (4)
  1. CISPLATIN [Suspect]
     Active Substance: CISPLATIN
     Indication: Gastric cancer
     Dosage: SIX CYCLES
     Route: 065
     Dates: start: 20160907, end: 20161207
  2. DOCETAXEL [Suspect]
     Active Substance: DOCETAXEL
     Indication: Gastric cancer
     Dosage: SIX CYCLES
     Route: 065
     Dates: start: 20160907, end: 20161207
  3. TS-1 [Concomitant]
     Active Substance: GIMERACIL\OTERACIL\TEGAFUR
     Indication: Gastric cancer
     Dosage: SIX CYCLES
     Route: 065
     Dates: start: 20160907, end: 20161207
  4. TRASTUZUMAB [Concomitant]
     Active Substance: TRASTUZUMAB
     Indication: Gastric cancer
     Dosage: SIX CYCLES
     Route: 065
     Dates: start: 20160907, end: 20161207

REACTIONS (1)
  - Myelosuppression [Unknown]
